FAERS Safety Report 15368762 (Version 1)
Quarter: 2018Q3

REPORT INFORMATION
  Report Type: Spontaneous
  Country: FR (occurrence: FR)
  Receive Date: 20180911
  Receipt Date: 20180911
  Transmission Date: 20181010
  Serious: Yes (Hospitalization)
  Sender: FDA-Public Use
  Company Number: FR-TEVA-2018-FR-953332

PATIENT
  Age: 44 Year
  Sex: Male
  Weight: 114 kg

DRUGS (3)
  1. ABILIFY [Suspect]
     Active Substance: ARIPIPRAZOLE
     Indication: BIPOLAR DISORDER
     Dosage: 15 MILLIGRAM DAILY;
     Route: 005
     Dates: start: 2017
  2. DEPAMIDE 300 MG, COMPRIM? PELLICUL? GASTRO?R?SISTANT [Suspect]
     Active Substance: VALPROMIDE
     Indication: BIPOLAR DISORDER
     Dosage: 1500 MILLIGRAM DAILY; 2?0?3
     Route: 048
     Dates: start: 2013
  3. TRAMADOL BASE [Suspect]
     Active Substance: TRAMADOL
     Indication: TOOTHACHE
     Dosage: 200 MILLIGRAM DAILY; 1?0?1 + 50 MG IF NECESSARY
     Route: 048
     Dates: start: 20180501, end: 20180531

REACTIONS (3)
  - Compulsive shopping [Recovered/Resolved]
  - Decreased appetite [Recovered/Resolved]
  - Affective disorder [Recovered/Resolved]

NARRATIVE: CASE EVENT DATE: 20180501
